FAERS Safety Report 9925219 (Version 1)
Quarter: 2014Q1

REPORT INFORMATION
  Report Type: Spontaneous
  Country: LV (occurrence: LV)
  Receive Date: 20140226
  Receipt Date: 20140226
  Transmission Date: 20141002
  Serious: Yes (Other)
  Sender: FDA-Public Use
  Company Number: LV-PFIZER INC-2014052025

PATIENT
  Age: 39 Month
  Sex: Male

DRUGS (2)
  1. SOLU-MEDROL [Suspect]
     Indication: JUVENILE IDIOPATHIC ARTHRITIS
     Dosage: 250 MG, SINGLE
     Route: 042
     Dates: start: 20130909, end: 20130909
  2. METHOTREXATE [Concomitant]
     Dosage: 10 MG/M2, STOPPED 3 DAYS BEFORE SOLU-MEDROL
     Dates: start: 201303

REACTIONS (3)
  - Agitation [Recovered/Resolved]
  - Irritability [Recovered/Resolved]
  - Crying [Recovered/Resolved]
